FAERS Safety Report 9476695 (Version 1)
Quarter: 2013Q3

REPORT INFORMATION
  Report Type: Spontaneous
  Country: FR (occurrence: FR)
  Receive Date: 20130826
  Receipt Date: 20130826
  Transmission Date: 20140515
  Serious: Yes (Life-Threatening, Hospitalization)
  Sender: FDA-Public Use
  Company Number: PHHY2013FR091949

PATIENT
  Age: 73 Year
  Sex: Male

DRUGS (4)
  1. GLIBENCLAMIDE [Suspect]
     Dosage: 2.5 MG, TID
     Route: 048
     Dates: start: 2003, end: 20130607
  2. METFORMINE SANDOZ [Concomitant]
     Dosage: 500 MG, BID
     Route: 048
     Dates: start: 2003, end: 20130607
  3. LANTUS [Concomitant]
     Dosage: 20 UG/KG, QD
     Route: 058
     Dates: start: 2009, end: 20130618
  4. OLMETEC [Concomitant]
     Route: 065

REACTIONS (1)
  - Hypoglycaemic coma [Recovered/Resolved]
